FAERS Safety Report 16712938 (Version 3)
Quarter: 2020Q1

REPORT INFORMATION
  Report Type: Report from Study
  Country: DE (occurrence: DE)
  Receive Date: 20190817
  Receipt Date: 20200118
  Transmission Date: 20200409
  Serious: Yes (Congenital Anomaly, Other)
  Sender: FDA-Public Use
  Company Number: DE-AUROBINDO-AUR-APL-2019-053874

PATIENT
  Sex: Female

DRUGS (6)
  1. INFLUENZA VACCINE [Suspect]
     Active Substance: INFLUENZA VIRUS VACCINE
     Indication: PROPHYLAXIS
     Dosage: UNK, DURING THE FIRST TRIMESTER
     Route: 064
  2. CEFUROXIME. [Suspect]
     Active Substance: CEFUROXIME
     Indication: OTITIS MEDIA
     Dosage: UNK, DURING THE FIRST TRIMESTER
     Route: 064
  3. VENLAFAXINE [Suspect]
     Active Substance: VENLAFAXINE HYDROCHLORIDE
     Indication: PRODUCT USED FOR UNKNOWN INDICATION
     Dosage: UNK, DURING ALL TRIMESTERS
     Route: 064
  4. PARACETAMOL [Suspect]
     Active Substance: ACETAMINOPHEN
     Indication: PAIN
     Dosage: 1000-1500 MG/DAY, BETWEEN GESTATIONAL WEEKS 9+0 AND 9+5
     Route: 064
  5. PARACETAMOL [Suspect]
     Active Substance: ACETAMINOPHEN
     Indication: PYREXIA
  6. NICOTINE. [Suspect]
     Active Substance: NICOTINE
     Indication: PRODUCT USED FOR UNKNOWN INDICATION
     Dosage: UNK, DURING ALL TRIMESTERS
     Route: 064

REACTIONS (4)
  - Patent ductus arteriosus [Unknown]
  - Foetal exposure during pregnancy [Unknown]
  - Congenital pulmonary hypertension [Unknown]
  - Congenital tricuspid valve incompetence [Unknown]
